FAERS Safety Report 7257200-5 (Version None)
Quarter: 2011Q1

REPORT INFORMATION
  Report Type: 
  Country: None (occurrence: None)
  Receive Date: 20110129
  Receipt Date: 20100719
  Transmission Date: 20110831
  Serious: No
  Sender: FDA-Public Use
  Company Number: US-ABBOTT-10P-163-0658632-00

PATIENT
  Age: 49 Year
  Sex: Female

DRUGS (6)
  1. LODINE [Concomitant]
     Indication: PAIN
  2. HUMIRA [Suspect]
  3. HYZAAR [Concomitant]
     Indication: BLOOD PRESSURE
     Dosage: 50/12.5MG DAILY
  4. ZOCOR [Concomitant]
     Indication: BLOOD CHOLESTEROL
  5. HUMIRA [Suspect]
     Indication: RHEUMATOID ARTHRITIS
     Dates: end: 20100707
  6. FLONASE [Concomitant]
     Indication: HYPERSENSITIVITY

REACTIONS (1)
  - URINARY TRACT INFECTION [None]
